FAERS Safety Report 5026630-4 (Version None)
Quarter: 2006Q2

REPORT INFORMATION
  Report Type: 
  Country: None (occurrence: None)
  Receive Date: 20060615
  Receipt Date: 20060508
  Transmission Date: 20061013
  Serious: Yes (Disabling, Other)
  Sender: FDA-Public Use
  Company Number: PT-BRISTOL-MYERS SQUIBB COMPANY-13369947

PATIENT
  Sex: Female

DRUGS (3)
  1. PRAVACHOL [Suspect]
     Indication: DYSLIPIDAEMIA
     Route: 048
     Dates: start: 20010101, end: 20060324
  2. CONCOR [Interacting]
     Indication: ARRHYTHMIA
     Dates: start: 20060101
  3. DIOVAN [Interacting]
     Indication: HYPERTENSION

REACTIONS (14)
  - ALANINE AMINOTRANSFERASE INCREASED [None]
  - ASTHENIA [None]
  - BLOOD LACTATE DEHYDROGENASE INCREASED [None]
  - BLOOD PYRUVIC ACID INCREASED [None]
  - CARDIAC FIBRILLATION [None]
  - DRUG INTERACTION [None]
  - FACIAL PAIN [None]
  - FATIGUE [None]
  - GENERAL PHYSICAL CONDITION ABNORMAL [None]
  - MIGRAINE [None]
  - MYALGIA [None]
  - MYOPATHY [None]
  - PALPITATIONS [None]
  - PRURITUS [None]
